FAERS Safety Report 7570997-X (Version None)
Quarter: 2011Q2

REPORT INFORMATION
  Report Type: 
  Country: None (occurrence: None)
  Receive Date: 20110620
  Receipt Date: 20110609
  Transmission Date: 20111010
  Serious: Yes (Death, Hospitalization)
  Sender: FDA-Public Use
  Company Number: 1000020725

PATIENT
  Age: 80 Year
  Sex: Male

DRUGS (4)
  1. CORTICOSTEROIDS (CORTICOSTEROIDS) (CORTICOSTEROIDS) [Concomitant]
  2. BRONCHODILATORS (BRONCHODILATORS) (BRONCHODILATORS) [Concomitant]
  3. ROFLUMILAST (ROFLUMILAST) (TABLETS) [Suspect]
     Indication: CHRONIC OBSTRUCTIVE PULMONARY DISEASE
     Dosage: 500 MCG (500 MCG, 1 IN 1 D), ORAL
     Route: 048
     Dates: start: 20110301, end: 20110301
  4. TIOTROPIUM BROMIDE (TIOTROPIUM BROMIDE) (TIOTROPIUM BROMIDE) [Concomitant]

REACTIONS (3)
  - RESTLESSNESS [None]
  - ASPIRATION BRONCHIAL [None]
  - INSOMNIA [None]
